FAERS Safety Report 23572019 (Version 2)
Quarter: 2024Q3

REPORT INFORMATION
  Report Type: Spontaneous
  Country: US (occurrence: US)
  Receive Date: 20240227
  Receipt Date: 20240702
  Transmission Date: 20241017
  Serious: No
  Sender: SANOFI AVENTIS
  Company Number: US-SA-SAC20240223001160

PATIENT
  Age: 81 Year
  Sex: Male

DRUGS (2)
  1. KEVZARA [Suspect]
     Active Substance: SARILUMAB
     Indication: Polymyalgia rheumatica
     Dosage: 200 MG, QOW
     Route: 058
     Dates: start: 202310
  2. KEVZARA [Suspect]
     Active Substance: SARILUMAB
     Indication: Arthralgia
     Dosage: 200 MG, Q3W
     Route: 058

REACTIONS (3)
  - Full blood count decreased [Unknown]
  - Product use in unapproved indication [Unknown]
  - Inappropriate schedule of product administration [Unknown]
